FAERS Safety Report 7573755-5 (Version None)
Quarter: 2011Q2

REPORT INFORMATION
  Report Type: 
  Country: None (occurrence: None)
  Receive Date: 20110621
  Receipt Date: 20110613
  Transmission Date: 20111010
  Serious: Yes (Hospitalization, Other)
  Sender: FDA-Public Use
  Company Number: 2009-200082-NL

PATIENT
  Sex: Female
  Weight: 71.6683 kg

DRUGS (9)
  1. PRENATAL VITAMINS [Concomitant]
  2. ALBUTEROL SULFATE AUTOHALER [Concomitant]
  3. NUVARING [Suspect]
     Indication: PRODUCT USED FOR UNKNOWN INDICATION
     Dosage: 1 DF
     Dates: start: 20060101
  4. NUVARING [Suspect]
     Indication: PRODUCT USED FOR UNKNOWN INDICATION
     Dosage: 1 DF
     Dates: start: 20020101, end: 20060101
  5. FLAGYL [Concomitant]
  6. LOTRIMIN [Concomitant]
  7. BENADRYL [Concomitant]
  8. FLEXERIL [Concomitant]
  9. ZOLOFT [Concomitant]

REACTIONS (24)
  - PLACENTAL DISORDER [None]
  - CERVICAL DYSPLASIA [None]
  - CHEST PAIN [None]
  - PULMONARY EMBOLISM [None]
  - PRE-ECLAMPSIA [None]
  - GESTATIONAL HYPERTENSION [None]
  - ASTHMA [None]
  - ABORTION SPONTANEOUS [None]
  - CAESAREAN SECTION [None]
  - TINEA INFECTION [None]
  - PARAESTHESIA [None]
  - THROMBOSIS [None]
  - HYPERTENSION [None]
  - PAPILLOMA VIRAL INFECTION [None]
  - OVARIAN CYST [None]
  - MIGRAINE [None]
  - PREMATURE DELIVERY [None]
  - DRUG EXPOSURE DURING PREGNANCY [None]
  - PREGNANCY [None]
  - PREGNANCY WITH CONTRACEPTIVE DEVICE [None]
  - DRUG EXPOSURE BEFORE PREGNANCY [None]
  - INSOMNIA [None]
  - MECONIUM STAIN [None]
  - GLYCOSURIA [None]
